FAERS Safety Report 19277626 (Version 2)
Quarter: 2021Q2

REPORT INFORMATION
  Report Type: Spontaneous
  Country: US (occurrence: US)
  Receive Date: 20210520
  Receipt Date: 20210618
  Transmission Date: 20210717
  Serious: No
  Sender: FDA-Public Use
  Company Number: US-SA-2021SA166971

PATIENT
  Age: 40 Year
  Sex: Male
  Weight: 113.4 kg

DRUGS (11)
  1. DIPHENHYDRAMINE. [Concomitant]
     Active Substance: DIPHENHYDRAMINE
  2. CARVEDILOL. [Concomitant]
     Active Substance: CARVEDILOL
  3. TACROLIMUS. [Concomitant]
     Active Substance: TACROLIMUS
  4. NORMAL SALINE [Concomitant]
     Active Substance: SODIUM CHLORIDE
  5. STERILE WATER [Concomitant]
     Active Substance: WATER
  6. CELLCEPT [Concomitant]
     Active Substance: MYCOPHENOLATE MOFETIL\MYCOPHENOLATE MOFETIL HYDROCHLORIDE
  7. VITAMIN D3 [Concomitant]
     Active Substance: CHOLECALCIFEROL
  8. EPINEPHRINE. [Concomitant]
     Active Substance: EPINEPHRINE
  9. PREDNISONE. [Concomitant]
     Active Substance: PREDNISONE
  10. SYNTHROID [Concomitant]
     Active Substance: LEVOTHYROXINE SODIUM
  11. FABRAZYME [Suspect]
     Active Substance: AGALSIDASE BETA
     Indication: FABRY^S DISEASE
     Dosage: 110 MG, QOW
     Route: 041
     Dates: start: 20170213

REACTIONS (3)
  - Blood pressure increased [Recovered/Resolved]
  - Weight increased [Unknown]
  - Chills [Unknown]
